FAERS Safety Report 7527043-3 (Version None)
Quarter: 2011Q2

REPORT INFORMATION
  Report Type: 
  Country: None (occurrence: None)
  Receive Date: 20110606
  Receipt Date: 20110527
  Transmission Date: 20111010
  Serious: Yes (Death, Life-Threatening)
  Sender: FDA-Public Use
  Company Number: JP-GENENTECH-319789

PATIENT
  Age: 85 Year
  Sex: Female

DRUGS (5)
  1. ACTIVASE [Suspect]
     Indication: EMBOLIC STROKE
     Dosage: 23.2 ML, SINGLE
     Route: 042
     Dates: start: 20110322, end: 20110322
  2. WARFARIN POTASSIUM [Concomitant]
     Indication: PRODUCT USED FOR UNKNOWN INDICATION
  3. RADICUT [Concomitant]
     Indication: PRODUCT USED FOR UNKNOWN INDICATION
     Dosage: 30 MG, UNK
  4. GLYCEOL [Concomitant]
     Indication: PRODUCT USED FOR UNKNOWN INDICATION
     Dosage: UNK
     Dates: start: 20110322, end: 20110328
  5. HYPERTENSIVE MEDICATION (UNK INGREDIENTS) [Concomitant]
     Indication: HYPERTENSION

REACTIONS (1)
  - CEREBRAL INFARCTION [None]
